FAERS Safety Report 24714879 (Version 1)
Quarter: 2024Q4

REPORT INFORMATION
  Report Type: Spontaneous
  Country: CN (occurrence: CN)
  Receive Date: 20241210
  Receipt Date: 20241210
  Transmission Date: 20250114
  Serious: Yes (Hospitalization)
  Sender: BEIGENE
  Company Number: CN-BEIGENE-BGN-2024-019525

PATIENT

DRUGS (3)
  1. TISLELIZUMAB [Suspect]
     Active Substance: TISLELIZUMAB
     Indication: Palliative care
     Dosage: 200 MILLIGRAM
     Route: 041
     Dates: start: 20241105
  2. CARBOPLATIN [Suspect]
     Active Substance: CARBOPLATIN
     Indication: Palliative care
     Dosage: 500 MILLIGRAM
     Route: 041
     Dates: start: 20241105
  3. PEMETREXED DISODIUM [Suspect]
     Active Substance: PEMETREXED DISODIUM
     Indication: Palliative care
     Dosage: 0.88 GRAM
     Route: 041
     Dates: start: 20241105

REACTIONS (2)
  - Pruritus [Recovering/Resolving]
  - Rash [Recovering/Resolving]

NARRATIVE: CASE EVENT DATE: 20241108
